FAERS Safety Report 4383966-8 (Version None)
Quarter: 2004Q2

REPORT INFORMATION
  Report Type: 
  Country: None (occurrence: None)
  Receive Date: 20040621
  Receipt Date: 20040611
  Transmission Date: 20050107
  Serious: Yes (Death)
  Sender: FDA-Public Use
  Company Number: 04H-163-0263606-00

PATIENT

DRUGS (1)
  1. SODIUM CHLORIDE 14.6% INJECTION, USP, PRES.- FREE, 250ML FT GLASS [Suspect]

REACTIONS (1)
  - MEDICATION ERROR [None]
